FAERS Safety Report 5276336-1 (Version None)
Quarter: 2007Q1

REPORT INFORMATION
  Report Type: 
  Country: None (occurrence: None)
  Receive Date: 20070326
  Receipt Date: 20070314
  Transmission Date: 20070707
  Serious: Yes (Other)
  Sender: FDA-Public Use
  Company Number: NL-PFIZER INC-2007020708

PATIENT
  Sex: Male
  Weight: 1990 kg

DRUGS (5)
  1. NIFEDIPINE [Suspect]
  2. RITODRINE HYDROCHLORIDE [Suspect]
  3. FUROSEMIDE [Suspect]
  4. ANTIBIOTICS [Suspect]
  5. CORTICOSTEROIDS [Suspect]

REACTIONS (3)
  - DRUG EXPOSURE DURING PREGNANCY [None]
  - LARGE FOR DATES BABY [None]
  - PREMATURE BABY [None]
